FAERS Safety Report 23160083 (Version 2)
Quarter: 2023Q4

REPORT INFORMATION
  Report Type: Spontaneous
  Country: CA (occurrence: None)
  Receive Date: 20231108
  Receipt Date: 20231110
  Transmission Date: 20240110
  Serious: Yes (Other)
  Sender: FDA-Public Use
  Company Number: CA-ROCHE-3453163

PATIENT
  Age: 45 Year
  Sex: Female

DRUGS (14)
  1. RITUXIMAB [Suspect]
     Active Substance: RITUXIMAB
     Indication: Rheumatoid arthritis
     Dosage: PREVIOUS DOSE RECEIVED ON 24/JUN/2016
     Route: 042
     Dates: start: 20151026
  2. TAMIFLU [Suspect]
     Active Substance: OSELTAMIVIR PHOSPHATE
     Indication: Product used for unknown indication
     Route: 065
  3. TORADOL [Suspect]
     Active Substance: KETOROLAC TROMETHAMINE
     Indication: Product used for unknown indication
     Route: 065
  4. DEXAMETHASONE [Suspect]
     Active Substance: DEXAMETHASONE
     Indication: Product used for unknown indication
     Route: 042
     Dates: start: 20140915
  5. KRILL OIL [Suspect]
     Active Substance: DIETARY SUPPLEMENT\KRILL OIL
     Indication: Product used for unknown indication
     Route: 065
     Dates: end: 2017
  6. ACETAMINOPHEN [Concomitant]
     Active Substance: ACETAMINOPHEN
     Dates: start: 20140915
  7. DIPHENHYDRAMINE HYDROCHLORIDE [Concomitant]
     Active Substance: DIPHENHYDRAMINE HYDROCHLORIDE
     Route: 048
     Dates: start: 20140915
  8. METHOTREXATE [Concomitant]
     Active Substance: METHOTREXATE
  9. FOLIC ACID [Concomitant]
     Active Substance: FOLIC ACID
  10. DOMPERIDONE [Concomitant]
     Active Substance: DOMPERIDONE
  11. GINGER [Concomitant]
     Active Substance: GINGER
  12. MAGNESIUM CITRATE [Concomitant]
     Active Substance: MAGNESIUM CITRATE
  13. VITAMIN D3 [Concomitant]
     Active Substance: CHOLECALCIFEROL
  14. LEUCOVORIN CALCIUM [Concomitant]
     Active Substance: LEUCOVORIN CALCIUM

REACTIONS (49)
  - Anxiety [Unknown]
  - Back pain [Not Recovered/Not Resolved]
  - Body temperature decreased [Unknown]
  - Nasopharyngitis [Recovering/Resolving]
  - Somnolence [Unknown]
  - Fatigue [Not Recovered/Not Resolved]
  - Heart rate increased [Unknown]
  - Myalgia [Recovered/Resolved]
  - Nausea [Unknown]
  - Oxygen saturation decreased [Unknown]
  - Arthralgia [Unknown]
  - Disturbance in attention [Recovered/Resolved]
  - Blood pressure fluctuation [Unknown]
  - Cerebral disorder [Unknown]
  - Angina pectoris [Unknown]
  - Decreased appetite [Unknown]
  - Dizziness [Recovering/Resolving]
  - Drug hypersensitivity [Unknown]
  - Cough [Recovered/Resolved]
  - Musculoskeletal stiffness [Unknown]
  - Eye disorder [Unknown]
  - Flushing [Unknown]
  - Fall [Unknown]
  - Pollakiuria [Not Recovered/Not Resolved]
  - Headache [Recovered/Resolved]
  - Impaired healing [Not Recovered/Not Resolved]
  - Urticaria [Recovering/Resolving]
  - Blood pressure increased [Unknown]
  - Infusion related reaction [Recovered/Resolved]
  - Feeling jittery [Unknown]
  - Skin laceration [Unknown]
  - Lethargy [Unknown]
  - Pyrexia [Recovered/Resolved]
  - Amnesia [Unknown]
  - Palpitations [Unknown]
  - Visual impairment [Not Recovered/Not Resolved]
  - Discomfort [Recovered/Resolved]
  - Tremor [Recovered/Resolved]
  - Dyspnoea [Not Recovered/Not Resolved]
  - Sinusitis [Recovering/Resolving]
  - Insomnia [Unknown]
  - Stress [Unknown]
  - Tachycardia [Recovered/Resolved]
  - Paraesthesia [Unknown]
  - Balance disorder [Recovered/Resolved]
  - Urine odour abnormal [Unknown]
  - Asthenia [Recovered/Resolved]
  - Fatigue [Unknown]
  - Anxiety [Recovering/Resolving]

NARRATIVE: CASE EVENT DATE: 20140915
